FAERS Safety Report 7477720-8 (Version None)
Quarter: 2011Q2

REPORT INFORMATION
  Report Type: 
  Country: None (occurrence: None)
  Receive Date: 20110513
  Receipt Date: 20110504
  Transmission Date: 20111010
  Serious: Yes (Hospitalization)
  Sender: FDA-Public Use
  Company Number: US-NAPPMUNDI-USA-2011-0067691

PATIENT
  Age: 89 Year
  Sex: Female

DRUGS (2)
  1. OXYCONTIN [Suspect]
     Indication: PAIN
     Dosage: UNK
  2. IBUPROFEN [Suspect]
     Indication: PRODUCT USED FOR UNKNOWN INDICATION

REACTIONS (4)
  - PAIN [None]
  - ACTIVITIES OF DAILY LIVING IMPAIRED [None]
  - DRUG ADMINISTRATION ERROR [None]
  - MUSCLE SPASMS [None]
